FAERS Safety Report 10447272 (Version 1)
Quarter: 2014Q3

REPORT INFORMATION
  Report Type: Report from Study
  Country: CO (occurrence: CO)
  Receive Date: 20140911
  Receipt Date: 20140911
  Transmission Date: 20150326
  Serious: Yes (Hospitalization, Other)
  Sender: FDA-Public Use
  Company Number: CO-ABBVIE-14K-036-1281200-00

PATIENT
  Age: 33 Year
  Sex: Female
  Weight: 85 kg

DRUGS (2)
  1. BETAMETHASONE [Concomitant]
     Active Substance: BETAMETHASONE
     Indication: PRODUCT USED FOR UNKNOWN INDICATION
  2. HUMIRA [Suspect]
     Active Substance: ADALIMUMAB
     Indication: PSORIASIS
     Route: 058
     Dates: start: 20130220, end: 20140630

REACTIONS (4)
  - Tooth abscess [Recovering/Resolving]
  - Gingival inflammation [Recovering/Resolving]
  - Tooth disorder [Recovering/Resolving]
  - Gingival pain [Recovering/Resolving]

NARRATIVE: CASE EVENT DATE: 20140806
